FAERS Safety Report 24635916 (Version 1)
Quarter: 2024Q4

REPORT INFORMATION
  Report Type: Spontaneous
  Country: US (occurrence: US)
  Receive Date: 20241119
  Receipt Date: 20241119
  Transmission Date: 20250115
  Serious: No
  Sender: BOEHRINGER INGELHEIM
  Company Number: US-Komodo Health-a23aa000004GGjGAAW

PATIENT
  Age: 82 Year
  Sex: Female

DRUGS (1)
  1. ATROVENT HFA [Suspect]
     Active Substance: IPRATROPIUM BROMIDE
     Indication: Product used for unknown indication
     Dosage: ONLY WHEN NEEDED

REACTIONS (3)
  - Chest discomfort [Unknown]
  - Cough [Unknown]
  - Viral infection [Unknown]
